FAERS Safety Report 5802612-7 (Version None)
Quarter: 2008Q3

REPORT INFORMATION
  Report Type: 
  Country: None (occurrence: None)
  Receive Date: 20080703
  Receipt Date: 20080626
  Transmission Date: 20090109
  Serious: Yes (Hospitalization)
  Sender: FDA-Public Use
  Company Number: E2020-02960-CLI-AT

PATIENT
  Age: 79 Year
  Sex: Female
  Weight: 53 kg

DRUGS (6)
  1. DONEPEZIL HCL [Suspect]
     Indication: DEMENTIA ALZHEIMER'S TYPE
     Dosage: DOUBLE BLIND, 1 IN 1 D, ORAL
     Route: 048
     Dates: start: 20080604
  2. MAGNESIUM (MAGNESIUM) [Concomitant]
  3. FOLIC ACID [Concomitant]
  4. ALENDRONATE SODIUM [Concomitant]
  5. OXERUTIN (TROXERUTIN) [Concomitant]
  6. KOMBI KLAZ [Concomitant]

REACTIONS (5)
  - ANAEMIA [None]
  - ILL-DEFINED DISORDER [None]
  - MONOCYTOSIS [None]
  - NEUTROPENIA [None]
  - RENAL DISORDER [None]
